FAERS Safety Report 17038265 (Version 1)
Quarter: 2019Q4

REPORT INFORMATION
  Report Type: Spontaneous
  Country: BG (occurrence: BG)
  Receive Date: 20191115
  Receipt Date: 20191115
  Transmission Date: 20200122
  Serious: Yes (Hospitalization)
  Sender: FDA-Public Use
  Company Number: BG-ASTRAZENECA-2019SF60449

PATIENT
  Sex: Female

DRUGS (11)
  1. SYMBICORT [Suspect]
     Active Substance: BUDESONIDE\FORMOTEROL FUMARATE DIHYDRATE
     Indication: ASTHMA
     Dosage: 320/9 MCG 2X1 INHALATION DAILY
     Route: 055
  2. SPIRIVA RESPIMAT [Concomitant]
     Active Substance: TIOTROPIUM BROMIDE
     Indication: ASTHMA
     Dosage: 1X2 INHALATIONS DAILY
  3. CANDESARTAN. [Concomitant]
     Active Substance: CANDESARTAN
     Indication: HYPERTENSION
  4. TERTENSIF [Concomitant]
     Active Substance: INDAPAMIDE
     Indication: HYPERTENSION
  5. CORTICOSTEROIDS [Concomitant]
     Active Substance: CORTICOSTEROID NOS
     Indication: HYPERTENSION
     Dosage: 0.35, G/L
  6. VENTOLIN [Concomitant]
     Active Substance: ALBUTEROL SULFATE
     Dosage: DAILY
  7. FASENRA [Suspect]
     Active Substance: BENRALIZUMAB
     Route: 058
  8. FASENRA [Suspect]
     Active Substance: BENRALIZUMAB
     Route: 058
  9. FLOSTERON [Concomitant]
  10. SYMBICORT [Suspect]
     Active Substance: BUDESONIDE\FORMOTEROL FUMARATE DIHYDRATE
     Indication: ASTHMA
     Dosage: 160/4.5 MCG UNKNOWN UNKNOWN
     Route: 055
  11. MEDROL [Concomitant]
     Active Substance: METHYLPREDNISOLONE
     Indication: HYPERTENSION

REACTIONS (3)
  - Asthma [Unknown]
  - Forced expiratory volume decreased [Unknown]
  - Inability to afford medication [Unknown]
